FAERS Safety Report 13442091 (Version 1)
Quarter: 2017Q2

REPORT INFORMATION
  Report Type: Spontaneous
  Country: PL (occurrence: PL)
  Receive Date: 20170414
  Receipt Date: 20170414
  Transmission Date: 20170830
  Serious: Yes (Hospitalization)
  Sender: FDA-Public Use
  Company Number: PL-BION-006182

PATIENT
  Age: 30 Year
  Sex: Female

DRUGS (3)
  1. VALPROIC ACID PROLONGED-RELEASE TABLETS 1000 MG [Suspect]
     Active Substance: VALPROIC ACID
     Indication: GENERALISED TONIC-CLONIC SEIZURE
     Dosage: ALSO RECEIVED SODIUM VALPROATE IN PROLONGED-RELEASE DRUGS (STRENGTH: 1000 MG)
     Route: 048
  2. LEVETIRACETAM. [Concomitant]
     Active Substance: LEVETIRACETAM
     Indication: GENERALISED TONIC-CLONIC SEIZURE
     Dosage: GENERALIZED TONIC-CLONIC, MYOCLONIC AND ABSENCE SEIZURES
  3. LAMOTRIGINE. [Concomitant]
     Active Substance: LAMOTRIGINE
     Indication: GENERALISED TONIC-CLONIC SEIZURE

REACTIONS (2)
  - Drug ineffective [Not Recovered/Not Resolved]
  - Malabsorption from administration site [Recovered/Resolved]
